FAERS Safety Report 12975572 (Version 2)
Quarter: 2017Q3

REPORT INFORMATION
  Report Type: Report from Study
  Country: None (occurrence: BR)
  Receive Date: 20161125
  Receipt Date: 20170815
  Transmission Date: 20171127
  Serious: Yes (Other)
  Sender: FDA-Public Use
  Company Number: BR-ABBVIE-16P-020-1791935-00

PATIENT
  Sex: Female
  Weight: 60 kg

DRUGS (5)
  1. SYNTHROID [Suspect]
     Active Substance: LEVOTHYROXINE SODIUM
     Dosage: FORM STRENGTH: 75 MCG. DAILY DOSE: 1 TABLET - 75 MCG?FREQUENCY: MORNING, FASTING
     Route: 048
  2. SYNTHROID [Suspect]
     Active Substance: LEVOTHYROXINE SODIUM
     Route: 048
     Dates: start: 1999, end: 1999
  3. SYNTHROID [Suspect]
     Active Substance: LEVOTHYROXINE SODIUM
     Route: 048
     Dates: start: 1999
  4. PANTOCAL [Concomitant]
     Indication: GASTRITIS
     Dosage: HALF HOUR AFTER SYNTHROID
  5. SYNTHROID [Suspect]
     Active Substance: LEVOTHYROXINE SODIUM
     Indication: HYPOTHYROIDISM
     Route: 048
     Dates: start: 1999, end: 1999

REACTIONS (3)
  - Thyroid disorder [Recovered/Resolved]
  - Pain [Recovered/Resolved]
  - Osteoarthritis [Recovered/Resolved]
